FAERS Safety Report 9036992 (Version 1)
Quarter: 2013Q1

REPORT INFORMATION
  Report Type: Report from Study
  Country: US (occurrence: US)
  Receive Date: 20130129
  Receipt Date: 20130129
  Transmission Date: 20140127
  Serious: Yes (Hospitalization, Other)
  Sender: FDA-Public Use
  Company Number: US-ABBOTT-12P-163-0892658-00

PATIENT
  Age: 45 Year
  Sex: Female

DRUGS (3)
  1. HUMIRA 40 MG/0.8 ML PEN [Suspect]
     Indication: RHEUMATOID ARTHRITIS
     Route: 058
     Dates: start: 2008, end: 201109
  2. METHOTREXATE [Concomitant]
     Indication: PRODUCT USED FOR UNKNOWN INDICATION
     Dosage: WEEKLY DOSE: 6 TABS
     Dates: end: 201109
  3. METHOTREXATE [Concomitant]
     Dosage: WEEKLY DOSE: 7 TABS
     Dates: start: 201109

REACTIONS (7)
  - Staphylococcal infection [Recovered/Resolved]
  - Abscess [Recovered/Resolved]
  - Joint swelling [Not Recovered/Not Resolved]
  - Staphylococcal infection [Not Recovered/Not Resolved]
  - Abscess [Not Recovered/Not Resolved]
  - Axillary mass [Not Recovered/Not Resolved]
  - Scar [Not Recovered/Not Resolved]
